FAERS Safety Report 24299460 (Version 2)
Quarter: 2025Q1

REPORT INFORMATION
  Report Type: Spontaneous
  Country: US (occurrence: US)
  Receive Date: 20240909
  Receipt Date: 20250115
  Transmission Date: 20250409
  Serious: No
  Sender: PFIZER
  Company Number: US-PFIZER INC-202400252262

PATIENT
  Age: 61 Year
  Sex: Female
  Weight: 49.887 kg

DRUGS (2)
  1. PAXLOVID [Suspect]
     Active Substance: NIRMATRELVIR\RITONAVIR
     Indication: COVID-19 treatment
     Dosage: [NIRMATRELVIR 300 MG]/[RITONAVIR 100 MG]; 2X/DAY
     Route: 048
     Dates: start: 20240830, end: 20240904
  2. ACETYLCYSTEINE [Concomitant]
     Active Substance: ACETYLCYSTEINE
     Indication: Antioxidant therapy
     Dosage: UNK; 1,200 DAILY

REACTIONS (3)
  - Myalgia [Recovered/Resolved]
  - Pyrexia [Recovered/Resolved with Sequelae]
  - Symptom recurrence [Unknown]

NARRATIVE: CASE EVENT DATE: 20240905
